FAERS Safety Report 5822791-5 (Version None)
Quarter: 2008Q3

REPORT INFORMATION
  Report Type: 
  Country: None (occurrence: None)
  Receive Date: 20080725
  Receipt Date: 20080718
  Transmission Date: 20090109
  Serious: Yes (Death, Hospitalization)
  Sender: FDA-Public Use
  Company Number: US-AVENTIS-200816900GDDC

PATIENT
  Age: 53 Year
  Sex: Male
  Weight: 139.7 kg

DRUGS (15)
  1. TAXOTERE [Suspect]
     Route: 042
     Dates: start: 20080225, end: 20080324
  2. TAXOTERE [Suspect]
     Route: 042
     Dates: end: 20071023
  3. OXALIPLATIN [Suspect]
     Route: 042
     Dates: start: 20080225, end: 20080324
  4. OXALIPLATIN [Suspect]
     Route: 042
     Dates: end: 20071023
  5. CAPECITABINE [Suspect]
     Route: 048
     Dates: start: 20080225, end: 20080330
  6. RADIATION THERAPY [Suspect]
     Dosage: DOSE: 1.8 GY/DAY MONDAY TO FRIDAY
     Dates: end: 20080328
  7. TRICOR                             /00090101/ [Concomitant]
     Dates: start: 20040101, end: 20080626
  8. ZETIA [Concomitant]
     Dates: start: 20070801, end: 20080626
  9. CADUET [Concomitant]
     Indication: HYPERTENSION
     Dates: start: 20040101, end: 20080626
  10. CADUET [Concomitant]
     Dates: start: 20040101, end: 20080626
  11. AMARYL [Concomitant]
     Dates: start: 20040101, end: 20080626
  12. LOTENSIN HCT [Concomitant]
     Indication: HYPERTENSION
     Dosage: DOSE: 20/25
     Dates: start: 20070801, end: 20080626
  13. ASPIRIN [Concomitant]
     Dates: start: 20080401, end: 20080625
  14. ORAL ANTIDIABETICS [Concomitant]
     Dates: start: 20071201, end: 20080625
  15. ARIXTRA [Concomitant]
     Dates: start: 20080409, end: 20080427

REACTIONS (4)
  - GASTROINTESTINAL ANASTOMOTIC LEAK [None]
  - MEDIASTINITIS [None]
  - TRACHEAL DISORDER [None]
  - TRACHEAL FISTULA [None]
